FAERS Safety Report 4562954-2 (Version None)
Quarter: 2005Q1

REPORT INFORMATION
  Report Type: 
  Country: None (occurrence: None)
  Receive Date: 20050121
  Receipt Date: 20050110
  Transmission Date: 20050727
  Serious: Yes (Death, Life-Threatening)
  Sender: FDA-Public Use
  Company Number: EWC050142094

PATIENT
  Age: 80 Year
  Sex: Male
  Weight: 75 kg

DRUGS (9)
  1. XIGRIS [Suspect]
     Indication: SEPSIS
     Dosage: 24 UG/KG/HR
     Route: 042
     Dates: start: 20041221, end: 20041224
  2. PIPERACILLIN W/TAZOBACTAM [Concomitant]
  3. MEROPENEM [Concomitant]
  4. METROGYL                 (METRONIDAZOLE) [Concomitant]
  5. TPN [Concomitant]
  6. PANTOPRAZOLE [Concomitant]
  7. LASIX [Concomitant]
  8. MANNITOL [Concomitant]
  9. TAXIM             (CEFOTAXIME) [Concomitant]

REACTIONS (9)
  - ACTIVATED PARTIAL THROMBOPLASTIN TIME PROLONGED [None]
  - CONVULSION [None]
  - HAEMORRHAGE INTRACRANIAL [None]
  - INCISION SITE HAEMORRHAGE [None]
  - INTERNATIONAL NORMALISED RATIO DECREASED [None]
  - PLATELET COUNT DECREASED [None]
  - PROTHROMBIN TIME PROLONGED [None]
  - UPPER GASTROINTESTINAL HAEMORRHAGE [None]
  - WOUND HAEMORRHAGE [None]
